FAERS Safety Report 13020121 (Version 3)
Quarter: 2019Q2

REPORT INFORMATION
  Report Type: Report from Study
  Country: CZ (occurrence: CZ)
  Receive Date: 20161212
  Receipt Date: 20190605
  Transmission Date: 20190711
  Serious: Yes (Hospitalization)
  Sender: FDA-Public Use
  Company Number: CZ-UCBSA-2016043396

PATIENT
  Age: 25 Year
  Sex: Female
  Weight: 70 kg

DRUGS (4)
  1. OMEPRAZOLE. [Concomitant]
     Active Substance: OMEPRAZOLE
     Indication: PROPHYLAXIS AGAINST GASTROINTESTINAL ULCER
     Dosage: 20 MG, ONCE DAILY (QD)
     Route: 048
     Dates: start: 201310
  2. CERTOLIZUMAB PEGOL VS PLACEBO [Suspect]
     Active Substance: CERTOLIZUMAB PEGOL
     Indication: AXIAL SPONDYLOARTHRITIS
     Dosage: 400 MG, UNK
     Route: 058
     Dates: start: 20161114, end: 20161114
  3. VIGANTOL [CHOLECALCIFEROL\CHOLESTEROL] [Concomitant]
     Active Substance: CHOLECALCIFEROL\CHOLESTEROL
     Indication: VITAMIN D DEFICIENCY
     Dosage: 25 GTT, WEEKLY (QW)
     Route: 048
     Dates: start: 20160331
  4. NIMESULIDE [Concomitant]
     Active Substance: NIMESULIDE
     Indication: AXIAL SPONDYLOARTHRITIS
     Dosage: 100 NG, AS NEEDED (PRN)
     Route: 048
     Dates: start: 20160331

REACTIONS (1)
  - Hypersensitivity [Recovered/Resolved]

NARRATIVE: CASE EVENT DATE: 20161114
